FAERS Safety Report 16805692 (Version 1)
Quarter: 2019Q3

REPORT INFORMATION
  Report Type: Spontaneous
  Country: GB (occurrence: GB)
  Receive Date: 20190913
  Receipt Date: 20190913
  Transmission Date: 20191005
  Serious: Yes (Other)
  Sender: FDA-Public Use
  Company Number: GB-MYLANLABS-2019M1085062

PATIENT
  Age: 54 Year
  Sex: Female
  Weight: 71 kg

DRUGS (6)
  1. LAMOTRIGINE. [Concomitant]
     Active Substance: LAMOTRIGINE
     Dosage: 2 DOSAGE FORM, QD
     Dates: start: 20180822
  2. DIAZEPAM. [Concomitant]
     Active Substance: DIAZEPAM
     Dosage: 2 DOSAGE FORM, QD
     Dates: start: 20190326
  3. GABAPENTIN. [Concomitant]
     Active Substance: GABAPENTIN
     Dosage: ON NIGHT FOR 3 NIGHTS, THEN ONE TWICE DAILY FOR 3 DAYS AND THEN ONE THREE TIMES A DAY
     Dates: start: 20190222, end: 20190322
  4. EPILIM [Concomitant]
     Active Substance: VALPROATE SODIUM
     Dosage: 2 DOSAGE FORM, QD
     Dates: start: 20180822
  5. SERTRALINE [Suspect]
     Active Substance: SERTRALINE HYDROCHLORIDE
     Indication: PRODUCT USED FOR UNKNOWN INDICATION
     Dosage: 50 MILLIGRAM, QD
     Dates: start: 20190322
  6. NITROFURANTOIN. [Concomitant]
     Active Substance: NITROFURANTOIN
     Dosage: 2 DOSAGE FORM, QD
     Dates: start: 20190322, end: 20190325

REACTIONS (1)
  - Dyskinesia [Recovering/Resolving]

NARRATIVE: CASE EVENT DATE: 20190322
